FAERS Safety Report 13183647 (Version 1)
Quarter: 2017Q1

REPORT INFORMATION
  Report Type: Spontaneous
  Country: BR (occurrence: BR)
  Receive Date: 20170203
  Receipt Date: 20170203
  Transmission Date: 20170428
  Serious: Yes (Hospitalization)
  Sender: FDA-Public Use
  Company Number: BR-ELI_LILLY_AND_COMPANY-BR201701011624

PATIENT
  Sex: Male

DRUGS (4)
  1. APIDRA [Concomitant]
     Active Substance: INSULIN GLULISINE
  2. HUMULIN N [Suspect]
     Active Substance: INSULIN HUMAN
     Indication: PRODUCT USED FOR UNKNOWN INDICATION
     Dosage: 60 IU, EACH MORNING
     Route: 065
  3. HUMULIN N [Suspect]
     Active Substance: INSULIN HUMAN
     Dosage: 20 U, QD
  4. HUMULIN N [Suspect]
     Active Substance: INSULIN HUMAN
     Dosage: 30 U, EACH EVENING

REACTIONS (3)
  - Drug dose omission [Unknown]
  - Feeling abnormal [Unknown]
  - Blood insulin abnormal [Not Recovered/Not Resolved]

NARRATIVE: CASE EVENT DATE: 201701
